FAERS Safety Report 19801545 (Version 3)
Quarter: 2021Q4

REPORT INFORMATION
  Report Type: Report from Study
  Country: US (occurrence: US)
  Receive Date: 20210908
  Receipt Date: 20211125
  Transmission Date: 20220304
  Serious: Yes (Hospitalization, Other)
  Sender: FDA-Public Use
  Company Number: US-BRISTOL-MYERS SQUIBB COMPANY-BMS-2021-088480

PATIENT
  Age: 67 Year
  Sex: Female

DRUGS (6)
  1. APIXABAN [Suspect]
     Active Substance: APIXABAN
     Indication: Pulmonary embolism
     Dosage: UNK
     Route: 065
     Dates: start: 2014
  2. HUMIRA [Suspect]
     Active Substance: ADALIMUMAB
     Indication: Crohn^s disease
     Dosage: UNK
     Route: 058
     Dates: start: 2001, end: 2014
  3. COUMADIN [Concomitant]
     Active Substance: WARFARIN SODIUM
     Indication: Pulmonary thrombosis
     Dosage: UNK
     Route: 065
  4. METOPROLOL TARTRATE [Concomitant]
     Active Substance: METOPROLOL TARTRATE
     Indication: Hypertension
     Dosage: UNK
     Route: 065
  5. MODERNA COVID-19 VACCINE [Concomitant]
     Active Substance: CX-024414
     Indication: COVID-19 immunisation
     Dosage: UNK
     Route: 030
     Dates: start: 20210326, end: 20210326
  6. MODERNA COVID-19 VACCINE [Concomitant]
     Active Substance: CX-024414
     Dosage: UNK
     Route: 030
     Dates: start: 20210423, end: 20210423

REACTIONS (4)
  - Pulmonary thrombosis [Recovered/Resolved]
  - Pulmonary haemorrhage [Recovered/Resolved]
  - Crohn^s disease [Recovered/Resolved]
  - Intentional product use issue [Unknown]

NARRATIVE: CASE EVENT DATE: 20140101
